FAERS Safety Report 24059597 (Version 2)
Quarter: 2024Q3

REPORT INFORMATION
  Report Type: Spontaneous
  Country: GB (occurrence: None)
  Receive Date: 20240708
  Receipt Date: 20240712
  Transmission Date: 20241016
  Serious: Yes (Death, Life-Threatening, Hospitalization, Disabling, Other)
  Sender: ASTRAZENECA
  Company Number: 2024A154756

PATIENT
  Age: 32 Year
  Sex: Female

DRUGS (2)
  1. ESOMEPRAZOLE [Suspect]
     Active Substance: ESOMEPRAZOLE
     Indication: Adverse drug reaction
     Route: 048
  2. ESOMEPRAZOLE [Suspect]
     Active Substance: ESOMEPRAZOLE
     Indication: Abdominal pain
     Route: 048

REACTIONS (4)
  - Arrhythmia [Fatal]
  - Cardiac arrest [Fatal]
  - Brain hypoxia [Fatal]
  - Product use in unapproved indication [Unknown]
